FAERS Safety Report 9671891 (Version 2)
Quarter: 2013Q4

REPORT INFORMATION
  Report Type: Spontaneous
  Country: US (occurrence: US)
  Receive Date: 20131106
  Receipt Date: 20131118
  Transmission Date: 20140711
  Serious: Yes (Life-Threatening, Hospitalization, Other)
  Sender: FDA-Public Use
  Company Number: US-BAYER-2013-134443

PATIENT
  Age: 42 Year
  Sex: Male
  Weight: 77 kg

DRUGS (3)
  1. ALEVE TABLET [Suspect]
     Dosage: 1 DF, QD
     Route: 048
     Dates: start: 20131018, end: 20131018
  2. BAYER ASPIRIN REGIMEN ADULT LOW STRENGTH [Concomitant]
     Dosage: 1 DF,
     Route: 048
  3. GLUCOSAMINE [Concomitant]

REACTIONS (11)
  - Anaphylactic reaction [Recovered/Resolved]
  - Myocardial infarction [Recovered/Resolved]
  - Type V hyperlipidaemia [None]
  - Acute myocardial infarction [Recovered/Resolved]
  - Hypothermia [None]
  - Feeling abnormal [Recovered/Resolved]
  - Flushing [Recovered/Resolved]
  - Hyperhidrosis [Recovered/Resolved]
  - Local swelling [None]
  - Arthralgia [None]
  - Hypotension [None]
